FAERS Safety Report 19397705 (Version 1)
Quarter: 2021Q2

REPORT INFORMATION
  Report Type: Spontaneous
  Country: US (occurrence: US)
  Receive Date: 20210610
  Receipt Date: 20210610
  Transmission Date: 20210717
  Serious: Yes (Hospitalization, Other)
  Sender: FDA-Public Use
  Company Number: US-DRREDDYS-USA/USA/21/0136518

PATIENT
  Age: 56 Year
  Sex: Female

DRUGS (5)
  1. ABRAXANE [Concomitant]
     Active Substance: PACLITAXEL
     Indication: ADENOCARCINOMA PANCREAS
     Dosage: GIVEN ON DAYS 1, 8 AND 15
     Dates: start: 2019
  2. ABRAXANE [Concomitant]
     Active Substance: PACLITAXEL
     Dosage: (125 MG/M2) GIVEN ON DAYS 1, 8 AND 15 , 21 DAY CYCLES
     Dates: start: 201901
  3. GEMCITABINE. [Suspect]
     Active Substance: GEMCITABINE
     Dates: start: 201901
  4. PACLITAXEL. [Concomitant]
     Active Substance: PACLITAXEL
     Indication: ADENOCARCINOMA PANCREAS
     Dates: start: 201901
  5. GEMCITABINE. [Suspect]
     Active Substance: GEMCITABINE
     Indication: ADENOCARCINOMA PANCREAS
     Dosage: 1000 MG/M2 GIVEN ON DAYS 1, 8 AND 15
     Dates: start: 2019

REACTIONS (2)
  - Myositis [Recovered/Resolved]
  - Recall phenomenon [Recovered/Resolved]

NARRATIVE: CASE EVENT DATE: 201904
